FAERS Safety Report 5485804-9 (Version None)
Quarter: 2007Q4

REPORT INFORMATION
  Report Type: 
  Country: None (occurrence: None)
  Receive Date: 20071015
  Receipt Date: 20071011
  Transmission Date: 20080405
  Serious: Yes (Hospitalization)
  Sender: FDA-Public Use
  Company Number: US-MERCK-0709USA00976

PATIENT
  Age: 20 Year
  Sex: Male
  Weight: 83 kg

DRUGS (4)
  1. VYTORIN [Suspect]
     Route: 048
     Dates: start: 20070730, end: 20070813
  2. KEPPRA [Concomitant]
     Indication: EPILEPSY
     Route: 065
     Dates: start: 20060101, end: 20070801
  3. KEPPRA [Concomitant]
     Route: 065
     Dates: start: 20070801
  4. INSULIN [Concomitant]
     Route: 065

REACTIONS (2)
  - COMPLEX PARTIAL SEIZURES [None]
  - DRUG LEVEL BELOW THERAPEUTIC [None]
